FAERS Safety Report 17257672 (Version 1)
Quarter: 2020Q1

REPORT INFORMATION
  Report Type: Spontaneous
  Country: US (occurrence: US)
  Receive Date: 20200109
  Receipt Date: 20200109
  Transmission Date: 20200409
  Serious: Yes (Hospitalization, Other)
  Sender: FDA-Public Use
  Company Number: None

PATIENT
  Age: 53 Year
  Sex: Female
  Weight: 81 kg

DRUGS (1)
  1. LISINOPRIL. [Suspect]
     Active Substance: LISINOPRIL
     Indication: HYPERTENSION
     Route: 048
     Dates: start: 20181022, end: 20200108

REACTIONS (7)
  - Pulmonary sarcoidosis [None]
  - Product complaint [None]
  - Hilar lymphadenopathy [None]
  - Cough [None]
  - Parotid gland enlargement [None]
  - Product impurity [None]
  - Pulmonary toxicity [None]

NARRATIVE: CASE EVENT DATE: 20190630
